FAERS Safety Report 13109917 (Version 1)
Quarter: 2017Q1

REPORT INFORMATION
  Report Type: Spontaneous
  Country: US (occurrence: US)
  Receive Date: 20170112
  Receipt Date: 20170112
  Transmission Date: 20170428
  Serious: Yes (Hospitalization)
  Sender: FDA-Public Use
  Company Number: US-ROCHE-1099757

PATIENT
  Sex: Male

DRUGS (6)
  1. ACTIVASE [Suspect]
     Active Substance: ALTEPLASE
     Indication: MYOCARDIAL INFARCTION
     Route: 040
  2. ACTIVASE [Suspect]
     Active Substance: ALTEPLASE
     Route: 040
  3. TRIDIL [Concomitant]
     Active Substance: NITROGLYCERIN
  4. MORPHINE [Concomitant]
     Active Substance: MORPHINE
  5. HEPARIN [Concomitant]
     Active Substance: HEPARIN SODIUM
  6. LIDOCAINE. [Concomitant]
     Active Substance: LIDOCAINE
     Route: 040

REACTIONS (8)
  - Hypotension [Unknown]
  - Chest pain [Unknown]
  - Hyperhidrosis [Unknown]
  - Cold sweat [Unknown]
  - Bradyarrhythmia [Unknown]
  - Haematemesis [Unknown]
  - Atrioventricular block second degree [Unknown]
  - Atrioventricular block complete [Unknown]
